FAERS Safety Report 25132833 (Version 4)
Quarter: 2025Q3

REPORT INFORMATION
  Report Type: Report from Study
  Country: JP (occurrence: JP)
  Receive Date: 20250328
  Receipt Date: 20250803
  Transmission Date: 20251021
  Serious: Yes (Other)
  Sender: ALEXION PHARMACEUTICALS
  Company Number: JP-ASTRAZENECA-230030861_011820_P_1

PATIENT
  Age: 14 Year
  Sex: Female
  Weight: 47 kg

DRUGS (4)
  1. KOSELUGO [Suspect]
     Active Substance: SELUMETINIB
     Indication: Neurofibroma
     Dates: start: 20230401, end: 20230427
  2. KOSELUGO [Suspect]
     Active Substance: SELUMETINIB
     Dosage: 25 MILLIGRAM, BID
     Dates: start: 20230601, end: 20230615
  3. KOSELUGO [Suspect]
     Active Substance: SELUMETINIB
     Dosage: 35 MILLIGRAM, QD (25 MG IN MORNING, 10 MG IN NIGHT)
     Dates: start: 20230616, end: 202307
  4. KOSELUGO [Suspect]
     Active Substance: SELUMETINIB
     Dosage: 35 MILLIGRAM, QD (IN NIGHT)
     Dates: start: 202307

REACTIONS (8)
  - Hepatic function abnormal [Recovering/Resolving]
  - Malaise [Recovered/Resolved]
  - Eczema [Not Recovered/Not Resolved]
  - Hyperuricaemia [Recovering/Resolving]
  - Stomatitis [Recovering/Resolving]
  - Somnolence [Recovered/Resolved]
  - Therapeutic response decreased [Unknown]
  - Tibia fracture [Recovered/Resolved]

NARRATIVE: CASE EVENT DATE: 20230415
